FAERS Safety Report 7372200-2 (Version None)
Quarter: 2011Q1

REPORT INFORMATION
  Report Type: 
  Country: None (occurrence: None)
  Receive Date: 20110225
  Receipt Date: 20101129
  Transmission Date: 20110831
  Serious: No
  Sender: FDA-Public Use
  Company Number: 319237

PATIENT
  Age: 75 Year
  Sex: Male
  Weight: 82.1 kg

DRUGS (2)
  1. VICTOZA [Suspect]
     Indication: TYPE 2 DIABETES MELLITUS
     Dosage: 0.6 MG, QD, SUBCUTANEOUS, 1.2 MG, QD, SUBCUTANEOUS
     Route: 058
     Dates: start: 20101016, end: 20101023
  2. VICTOZA [Suspect]
     Indication: TYPE 2 DIABETES MELLITUS
     Dosage: 0.6 MG, QD, SUBCUTANEOUS, 1.2 MG, QD, SUBCUTANEOUS
     Route: 058
     Dates: start: 20101024

REACTIONS (2)
  - WEIGHT DECREASED [None]
  - BLOOD GLUCOSE INCREASED [None]
